FAERS Safety Report 7023971-6 (Version None)
Quarter: 2010Q4

REPORT INFORMATION
  Report Type: 
  Country: None (occurrence: None)
  Receive Date: 20101001
  Receipt Date: 20100920
  Transmission Date: 20110411
  Serious: Yes (Other)
  Sender: FDA-Public Use
  Company Number: AU-NOVOPROD-315582

PATIENT
  Sex: Female
  Weight: 1.914 kg

DRUGS (2)
  1. PROTAPHANE PENFILL [Suspect]
     Indication: TYPE 2 DIABETES MELLITUS
     Dosage: 60 U, QD AT NIGHT
     Route: 064
     Dates: start: 20090201, end: 20100602
  2. NOVORAPID [Suspect]
     Indication: TYPE 2 DIABETES MELLITUS
     Dosage: 250-350 UNITS DAILY
     Route: 064
     Dates: start: 20090201, end: 20100602

REACTIONS (3)
  - DRUG EXPOSURE DURING PREGNANCY [None]
  - FOETAL GROWTH RESTRICTION [None]
  - PREMATURE BABY [None]
